FAERS Safety Report 5898771-0 (Version None)
Quarter: 2008Q3

REPORT INFORMATION
  Report Type: 
  Country: None (occurrence: None)
  Receive Date: 20080925
  Receipt Date: 20080606
  Transmission Date: 20090109
  Serious: No
  Sender: FDA-Public Use
  Company Number: A0731744A

PATIENT
  Age: 38 Year
  Sex: Female

DRUGS (4)
  1. WELLBUTRIN XL [Suspect]
     Indication: ANXIETY DISORDER
     Dosage: 150MG PER DAY
     Route: 048
     Dates: start: 20080101
  2. MOBAN [Suspect]
     Dosage: 12.5MG PER DAY
     Dates: start: 20080526, end: 20080605
  3. PERPHENAZINE [Suspect]
     Dosage: 2MG PER DAY
     Route: 065
     Dates: start: 20080101, end: 20080401
  4. NO CONCURRENT MEDICATION [Concomitant]

REACTIONS (1)
  - GALACTORRHOEA [None]
